FAERS Safety Report 6194141-9 (Version None)
Quarter: 2009Q2

REPORT INFORMATION
  Report Type: 
  Country: None (occurrence: None)
  Receive Date: 20090518
  Receipt Date: 20090508
  Transmission Date: 20091009
  Serious: Yes (Hospitalization)
  Sender: FDA-Public Use
  Company Number: US-GENENTECH-282695

PATIENT
  Sex: Male
  Weight: 32 kg

DRUGS (4)
  1. SOMATROPIN [Suspect]
     Indication: FOETAL GROWTH RETARDATION
     Dosage: 0.3 MG, 7/WEEK
     Dates: start: 20020909
  2. FLONASE [Concomitant]
     Indication: DRUG USE FOR UNKNOWN INDICATION
  3. ATARAX [Concomitant]
     Indication: DRUG USE FOR UNKNOWN INDICATION
  4. LORTAB [Concomitant]
     Indication: DRUG USE FOR UNKNOWN INDICATION

REACTIONS (1)
  - JOINT DISLOCATION [None]
